FAERS Safety Report 4372726-X (Version None)
Quarter: 2004Q2

REPORT INFORMATION
  Report Type: 
  Country: None (occurrence: None)
  Receive Date: 20040526
  Receipt Date: 20040518
  Transmission Date: 20050107
  Serious: Yes (Hospitalization)
  Sender: FDA-Public Use
  Company Number: 2004UW07220

PATIENT
  Age: 68 Year
  Sex: Male
  Weight: 115.2136 kg

DRUGS (2)
  1. ZOLADEX [Suspect]
     Indication: PROSTATE CANCER
     Dosage: 3.6 MG MONTH SQ
     Dates: start: 19890701, end: 20040227
  2. VERAPAMIL [Concomitant]

REACTIONS (1)
  - MYELODYSPLASTIC SYNDROME [None]
